FAERS Safety Report 5500207-6 (Version None)
Quarter: 2007Q4

REPORT INFORMATION
  Report Type: 
  Country: None (occurrence: None)
  Receive Date: 20071025
  Receipt Date: 20071010
  Transmission Date: 20080405
  Serious: Yes (Hospitalization)
  Sender: FDA-Public Use
  Company Number: 2007001916

PATIENT
  Sex: Female
  Weight: 56.246 kg

DRUGS (1)
  1. ERLOTINIB (ERLOTINIB HCL) (TABLET) (ERLOTINIBHCL) [Suspect]
     Indication: TONGUE CANCER METASTATIC
     Dosage: (150 MG,QD), ORAL
     Route: 048
     Dates: start: 20070807, end: 20071007

REACTIONS (4)
  - ASTHENIA [None]
  - FATIGUE [None]
  - PAIN [None]
  - PNEUMONIA ASPIRATION [None]
